FAERS Safety Report 9170045 (Version 1)
Quarter: 2013Q1

REPORT INFORMATION
  Report Type: Report from Study
  Country: US (occurrence: US)
  Receive Date: 20130319
  Receipt Date: 20130319
  Transmission Date: 20140127
  Serious: No
  Sender: FDA-Public Use
  Company Number: US-009507513-1303USA008042

PATIENT
  Sex: Female

DRUGS (8)
  1. VICTRELIS [Suspect]
     Indication: HEPATITIS C
     Dosage: 800 MG, TID
     Route: 048
     Dates: start: 20121025
  2. RIBAVIRIN [Suspect]
     Indication: HEPATITIS C
     Dosage: DIVIDED DOSE QD
     Route: 048
     Dates: start: 20120920
  3. RIBAVIRIN [Suspect]
     Dosage: 600 MG, QD
     Route: 048
  4. RIBAVIRIN [Suspect]
     Dosage: 800 MG, UNK
     Route: 048
  5. PEGASYS [Suspect]
     Indication: HEPATITIS C
     Dosage: 180 MICROGRAM, UNK
     Route: 058
     Dates: start: 20120920
  6. PEGASYS [Suspect]
     Dosage: 135 MICROGRAM, UNK
     Route: 058
  7. FILGRASTIM [Suspect]
  8. PROCRIT [Concomitant]

REACTIONS (10)
  - Herpes virus infection [Unknown]
  - Asthenia [Unknown]
  - Haemoglobin decreased [Unknown]
  - White blood cell count decreased [Unknown]
  - Platelet count decreased [Unknown]
  - Pruritus [Unknown]
  - Pruritus [Unknown]
  - Rash [Not Recovered/Not Resolved]
  - Pruritus [Not Recovered/Not Resolved]
  - Hypersensitivity [Unknown]
